FAERS Safety Report 5034582-6 (Version None)
Quarter: 2006Q2

REPORT INFORMATION
  Report Type: 
  Country: None (occurrence: None)
  Receive Date: 20060621
  Receipt Date: 20060613
  Transmission Date: 20061013
  Serious: Yes (Other)
  Sender: FDA-Public Use
  Company Number: 2006BH010956

PATIENT
  Sex: Female

DRUGS (6)
  1. FENTANYL CITRATE [Suspect]
     Indication: CAESAREAN SECTION
     Dosage: 25 UG; INTH
  2. BUPIVACAINE [Suspect]
     Indication: CAESAREAN SECTION
     Dosage: INTH
  3. RANITIDINE [Concomitant]
  4. ATROPINE [Concomitant]
  5. SODIUM CITRATE [Concomitant]
  6. LACTATED RINGER'S [Concomitant]

REACTIONS (2)
  - DRUG EXPOSURE DURING PREGNANCY [None]
  - VOMITING [None]
